FAERS Safety Report 9927762 (Version 1)
Quarter: 2014Q1

REPORT INFORMATION
  Report Type: Spontaneous
  Country: IN (occurrence: IN)
  Receive Date: 20140227
  Receipt Date: 20140227
  Transmission Date: 20141002
  Serious: Yes (Death, Life-Threatening, Hospitalization, Disabling, Other)
  Sender: FDA-Public Use
  Company Number: IN-BRISTOL-MYERS SQUIBB COMPANY-20328027

PATIENT
  Age: 70 Year
  Sex: Male
  Weight: 90 kg

DRUGS (3)
  1. ERBITUX SOLN FOR INF [Suspect]
     Indication: GLOTTIS CARCINOMA
     Dosage: 500MG 1IN1WK-IV.5D13-8JAN14(34WK)
     Route: 042
     Dates: start: 20131127
  2. DEXAMETHASONE [Concomitant]
     Dosage: 30-NOV-2013 TO 13-JAN-2014
     Route: 048
     Dates: start: 20131130, end: 20140113
  3. NEBIVOLOL [Concomitant]
     Indication: HYPERTENSION

REACTIONS (12)
  - Diabetic hyperosmolar coma [Fatal]
  - Cardiac arrest [Fatal]
  - Muscle spasms [Recovered/Resolved]
  - Cough [Recovered/Resolved]
  - Dehydration [Recovered/Resolved]
  - Pulmonary sepsis [Unknown]
  - Drug withdrawal syndrome [Unknown]
  - Dysphagia [Unknown]
  - Paralysis [Unknown]
  - Bradycardia [Unknown]
  - Hypophagia [Unknown]
  - Skin reaction [Unknown]
